FAERS Safety Report 4711181-4 (Version None)
Quarter: 2005Q3

REPORT INFORMATION
  Report Type: 
  Country: None (occurrence: None)
  Receive Date: 20050708
  Receipt Date: 20050629
  Transmission Date: 20060218
  Serious: Yes (Life-Threatening, Other)
  Sender: FDA-Public Use
  Company Number: 2005BH000393

PATIENT
  Age: 26 Year
  Weight: 58 kg

DRUGS (8)
  1. EXTRANEAL [Suspect]
     Indication: RENAL FAILURE CHRONIC
     Dosage: 2000 ML; EVERY DAY; IP
     Dates: start: 20040110, end: 20041115
  2. DIANEAL PD-4 2.5 [Concomitant]
  3. NU-LOTAN [Concomitant]
  4. OMEPRAZOLE [Concomitant]
  5. MUCOSTA [Concomitant]
  6. CALTAN [Concomitant]
  7. HOCHU-EKKI-TO [Concomitant]
  8. EPOGIN [Concomitant]

REACTIONS (5)
  - CHOLECYSTITIS ACUTE [None]
  - ESCHERICHIA INFECTION [None]
  - HAEMODIALYSIS [None]
  - PERITONITIS BACTERIAL [None]
  - STAPHYLOCOCCAL INFECTION [None]
